FAERS Safety Report 23507352 (Version 1)
Quarter: 2024Q1

REPORT INFORMATION
  Report Type: Spontaneous
  Country: US (occurrence: None)
  Receive Date: 20240209
  Receipt Date: 20240209
  Transmission Date: 20240409
  Serious: No
  Sender: FDA-Public Use
  Company Number: None

PATIENT
  Age: 81 Year
  Sex: Male

DRUGS (1)
  1. JAKAFI [Suspect]
     Active Substance: RUXOLITINIB
     Indication: Polycythaemia vera
     Dosage: 3 TOT -TOTAL 4 QM AND 2 QPM  ORAL
     Route: 048
     Dates: start: 20230328

REACTIONS (5)
  - Hordeolum [None]
  - Infection [None]
  - Headache [None]
  - Rash [None]
  - Rash [None]

NARRATIVE: CASE EVENT DATE: 20240208
